FAERS Safety Report 5798838-1 (Version None)
Quarter: 2008Q2

REPORT INFORMATION
  Report Type: 
  Country: None (occurrence: None)
  Receive Date: 20080630
  Receipt Date: 20080619
  Transmission Date: 20081010
  Serious: Yes (Hospitalization)
  Sender: FDA-Public Use
  Company Number: 2008-178668-NL

PATIENT
  Age: 47 Year
  Sex: Male

DRUGS (3)
  1. NANDROLONE DECANOATE [Suspect]
     Indication: MUSCLE MASS
     Dosage: 300 MG WEEKLY
  2. SUSTANON 250 [Suspect]
     Indication: MUSCLE MASS
     Dosage: 300 MG WEEKLY
  3. TESTOSTERONE ENANTHATE [Suspect]
     Indication: MUSCLE MASS
     Dosage: 200 MG WEEKLY

REACTIONS (9)
  - DRUG ABUSE [None]
  - DYSPHONIA [None]
  - DYSPNOEA [None]
  - LARYNGEAL OEDEMA [None]
  - LARYNGITIS [None]
  - OBSTRUCTIVE AIRWAYS DISORDER [None]
  - PHARYNGEAL OEDEMA [None]
  - STRIDOR [None]
  - VOCAL CORD POLYP [None]
